FAERS Safety Report 23614124 (Version 1)
Quarter: 2024Q1

REPORT INFORMATION
  Report Type: Spontaneous
  Country: GB (occurrence: GB)
  Receive Date: 20240310
  Receipt Date: 20240310
  Transmission Date: 20240410
  Serious: Yes (Other)
  Sender: FDA-Public Use
  Company Number: GB-ABBVIE-5626033

PATIENT
  Sex: Male

DRUGS (1)
  1. DALBAVANCIN HYDROCHLORIDE [Suspect]
     Active Substance: DALBAVANCIN HYDROCHLORIDE
     Indication: Osteomyelitis
     Dosage: TIME INTERVAL: AS NECESSARY: FREQUENCY: EVERY 1 MONTH; FORM STRENGTH 500 MG
     Route: 065

REACTIONS (10)
  - Osteonecrosis of jaw [Unknown]
  - Intestinal resection [Unknown]
  - Debridement [Unknown]
  - Off label use [Recovered/Resolved]
  - Head and neck cancer [Unknown]
  - Pancreatitis chronic [Unknown]
  - Diarrhoea [Unknown]
  - Fatigue [Unknown]
  - Abscess rupture [Unknown]
  - Alcohol use [Unknown]
